FAERS Safety Report 9358346 (Version 5)
Quarter: 2013Q3

REPORT INFORMATION
  Report Type: Report from Study
  Country: US (occurrence: US)
  Receive Date: 20130620
  Receipt Date: 20130826
  Transmission Date: 20140515
  Serious: Yes (Hospitalization, Other)
  Sender: FDA-Public Use
  Company Number: PHEH2013US012947

PATIENT
  Age: 9 Year
  Sex: Female
  Weight: 30.4 kg

DRUGS (13)
  1. ILARIS [Suspect]
     Indication: JUVENILE IDIOPATHIC ARTHRITIS
     Dosage: 4 MG/KG, UNK
     Route: 058
     Dates: start: 20130531, end: 20130531
  2. ILARIS [Suspect]
     Dosage: 2 MG/KG, UNK
     Route: 058
     Dates: start: 20130727
  3. PREDNISOLONE [Concomitant]
     Indication: JUVENILE IDIOPATHIC ARTHRITIS
     Dosage: 18 MG, DAILY
     Route: 048
     Dates: start: 20130530
  4. PREDNISOLONE [Concomitant]
     Dosage: 3 MG, QD
     Dates: start: 201303
  5. AMLODIPINE [Concomitant]
     Indication: HYPERTENSION
     Dosage: 2.5 MG, DAILY
     Route: 048
     Dates: start: 20130124
  6. VYVANSE [Concomitant]
     Indication: ATTENTION DEFICIT/HYPERACTIVITY DISORDER
     Dosage: 30 MG, DAILY
     Route: 048
     Dates: start: 2011, end: 201305
  7. ANAKINRA [Concomitant]
     Indication: JUVENILE IDIOPATHIC ARTHRITIS
     Dosage: 2 MG, QD
     Route: 058
     Dates: start: 20110919, end: 20130530
  8. ANAKINRA [Concomitant]
     Dosage: 4 MG/KG, UNK
  9. NSAID^S [Concomitant]
  10. METHOTREXATE [Concomitant]
     Dosage: 15 MG, UNK
     Dates: start: 20130417
  11. STEROIDS NOS [Concomitant]
  12. URSODIOL [Concomitant]
  13. ACTIGALL [Concomitant]

REACTIONS (9)
  - Drug-induced liver injury [Recovering/Resolving]
  - Hepatitis [Recovering/Resolving]
  - Jaundice [Unknown]
  - Blood bilirubin increased [Recovering/Resolving]
  - Liver function test abnormal [Recovering/Resolving]
  - Hepatic steatosis [Recovering/Resolving]
  - Viral infection [Unknown]
  - Pyrexia [Unknown]
  - Rash erythematous [Unknown]
